FAERS Safety Report 5494393-4 (Version None)
Quarter: 2007Q4

REPORT INFORMATION
  Report Type: 
  Country: None (occurrence: None)
  Receive Date: 20071015
  Receipt Date: 20070606
  Transmission Date: 20080405
  Serious: Yes (Hospitalization)
  Sender: FDA-Public Use
  Company Number: S07-USA-02462-01

PATIENT
  Age: 19 Year
  Sex: Male

DRUGS (3)
  1. LEXAPRO [Suspect]
     Indication: DEPRESSION
     Dosage: 10 MG QD PO
     Route: 048
     Dates: start: 20070101
  2. ALCOHOL [Suspect]
  3. ALLERGY MEDICATION (NOS) [Concomitant]

REACTIONS (2)
  - FATIGUE [None]
  - PANCREATITIS [None]
